FAERS Safety Report 7006618-4 (Version None)
Quarter: 2010Q3

REPORT INFORMATION
  Report Type: 
  Country: None (occurrence: None)
  Receive Date: 20100921
  Receipt Date: 20100907
  Transmission Date: 20110219
  Serious: Yes (Hospitalization, Other)
  Sender: FDA-Public Use
  Company Number: PHHY2010IT60234

PATIENT
  Age: 38 Year
  Sex: Male

DRUGS (3)
  1. EVEROLIMUS [Suspect]
     Indication: LUNG TRANSPLANT
     Dosage: UNK
     Dates: start: 20050901
  2. TACROLIMUS [Suspect]
  3. PREDNISOLONE [Suspect]

REACTIONS (13)
  - ASPERGILLOSIS [None]
  - COUGH [None]
  - CYSTIC FIBROSIS LUNG [None]
  - EMBOLISM ARTERIAL [None]
  - H1N1 INFLUENZA [None]
  - HAEMOPTYSIS [None]
  - HEADACHE [None]
  - LUNG LOBECTOMY [None]
  - MUSCULOSKELETAL PAIN [None]
  - PNEUMONIA [None]
  - PYREXIA [None]
  - RESPIRATORY FAILURE [None]
  - RHINITIS [None]
